FAERS Safety Report 18153602 (Version 1)
Quarter: 2020Q3

REPORT INFORMATION
  Report Type: Spontaneous
  Country: US (occurrence: US)
  Receive Date: 20200816
  Receipt Date: 20200816
  Transmission Date: 20201103
  Serious: No
  Sender: FDA-Public Use
  Company Number: US-ELI_LILLY_AND_COMPANY-US202008002775

PATIENT
  Sex: Female

DRUGS (8)
  1. BOTULINUM TOXIN TYPE A [Suspect]
     Active Substance: BOTULINUM TOXIN TYPE A
     Dosage: 20 U, SINGLE
     Route: 065
     Dates: start: 20200612, end: 20200612
  2. BOTULINUM TOXIN TYPE A [Suspect]
     Active Substance: BOTULINUM TOXIN TYPE A
     Dosage: 10 U, SINGLE
     Route: 065
     Dates: start: 20200612, end: 20200612
  3. BOTULINUM TOXIN TYPE A [Suspect]
     Active Substance: BOTULINUM TOXIN TYPE A
     Dosage: 40 U, SINGLE
     Route: 065
     Dates: start: 20200612, end: 20200612
  4. BOTULINUM TOXIN TYPE A [Suspect]
     Active Substance: BOTULINUM TOXIN TYPE A
     Dosage: 30 U, SINGLE
     Route: 065
     Dates: start: 20200612, end: 20200612
  5. CYMBALTA [Suspect]
     Active Substance: DULOXETINE HYDROCHLORIDE
     Indication: PRODUCT USED FOR UNKNOWN INDICATION
     Dosage: UNK UNK, UNKNOWN
     Route: 065
  6. BOTULINUM TOXIN TYPE A [Suspect]
     Active Substance: BOTULINUM TOXIN TYPE A
     Dosage: 30 U, SINGLE
     Route: 065
     Dates: start: 20200612, end: 20200612
  7. BOTULINUM TOXIN TYPE A [Suspect]
     Active Substance: BOTULINUM TOXIN TYPE A
     Indication: MIGRAINE
     Dosage: UNK UNK, OTHER(REGIMEN ONE)
     Route: 065
     Dates: start: 20200612, end: 20200612
  8. BOTULINUM TOXIN TYPE A [Suspect]
     Active Substance: BOTULINUM TOXIN TYPE A
     Dosage: 30 U, SINGLE
     Route: 065
     Dates: start: 20200612, end: 20200612

REACTIONS (7)
  - Neck pain [Not Recovered/Not Resolved]
  - Dizziness [Not Recovered/Not Resolved]
  - Nausea [Unknown]
  - Impaired quality of life [Unknown]
  - Insomnia [Not Recovered/Not Resolved]
  - Phonophobia [Unknown]
  - Photophobia [Unknown]
